FAERS Safety Report 8229644-6 (Version None)
Quarter: 2012Q1

REPORT INFORMATION
  Report Type: 
  Country: None (occurrence: None)
  Receive Date: 20120322
  Receipt Date: 20120316
  Transmission Date: 20120608
  Serious: Yes (Other)
  Sender: FDA-Public Use
  Company Number: PHEH2011US06008

PATIENT
  Sex: Female
  Weight: 87.982 kg

DRUGS (7)
  1. FLONASE [Concomitant]
     Dosage: 2 OT, QD
  2. ALLEGRA-D 12 HOUR [Interacting]
     Indication: HYPERSENSITIVITY
     Dosage: 1 DF, QD
     Route: 048
  3. GILENYA [Interacting]
     Dosage: 0.5 MG, QD
     Route: 048
     Dates: start: 20111013, end: 20111129
  4. AMITRIPTYLINE HCL [Concomitant]
     Dosage: 20 MG, QHS
     Route: 048
  5. GILENYA [Suspect]
     Indication: RELAPSING-REMITTING MULTIPLE SCLEROSIS
     Dosage: 0.5 MG, DAILY
     Route: 048
     Dates: start: 20110721, end: 20110929
  6. IBUPROFEN (ADVIL) [Concomitant]
  7. JOLESSA [Concomitant]
     Indication: CONTRACEPTION
     Dosage: 1 DF, QD
     Route: 048

REACTIONS (26)
  - PERICARDITIS [None]
  - ELECTROCARDIOGRAM ABNORMAL [None]
  - CARDIAC MURMUR [None]
  - DYSPNOEA [None]
  - MOUTH ULCERATION [None]
  - OEDEMA PERIPHERAL [None]
  - COUGH [None]
  - NEUTROPHIL PERCENTAGE INCREASED [None]
  - HYPERHIDROSIS [None]
  - EUSTACHIAN TUBE DYSFUNCTION [None]
  - BLOOD PRESSURE DECREASED [None]
  - LYMPHOCYTE COUNT DECREASED [None]
  - PYREXIA [None]
  - PLEURITIC PAIN [None]
  - NASAL SEPTUM DEVIATION [None]
  - CHEST DISCOMFORT [None]
  - DRUG INTERACTION [None]
  - FIBRIN D DIMER INCREASED [None]
  - ALANINE AMINOTRANSFERASE INCREASED [None]
  - MULTIPLE SCLEROSIS RELAPSE [None]
  - BLOOD GLUCOSE INCREASED [None]
  - MYOCARDIAL INFARCTION [None]
  - CHEST PAIN [None]
  - BODY MASS INDEX INCREASED [None]
  - NASOPHARYNGITIS [None]
  - BLOOD ALBUMIN DECREASED [None]
